FAERS Safety Report 7716427-6 (Version None)
Quarter: 2011Q3

REPORT INFORMATION
  Report Type: 
  Country: None (occurrence: None)
  Receive Date: 20110829
  Receipt Date: 20110822
  Transmission Date: 20111222
  Serious: Yes (Hospitalization)
  Sender: FDA-Public Use
  Company Number: PHHO2011FR03729

PATIENT
  Sex: Female
  Weight: 63 kg

DRUGS (5)
  1. CYCLOPHOSPHAMIDE [Suspect]
     Dosage: 860 MG, UNK
     Route: 048
     Dates: start: 20110203
  2. FLUOROURACIL [Suspect]
     Dosage: 860 MG, UNK
     Route: 042
     Dates: start: 20110203
  3. EPIRUBICIN HYDROCHLORIDE [Suspect]
     Indication: BREAST CANCER
     Dosage: 170 MG, UNK
     Route: 042
     Dates: start: 20110203
  4. CYCLOPHOSPHAMIDE [Suspect]
     Indication: BREAST CANCER
     Dosage: 860 MG, UNK
     Route: 042
     Dates: start: 20110203
  5. NO TREATMENT RECEIVED [Suspect]
     Dosage: NO TREATMENT

REACTIONS (2)
  - NEUTROPENIA [None]
  - OTITIS EXTERNA [None]
